FAERS Safety Report 6547785-6 (Version None)
Quarter: 2010Q1

REPORT INFORMATION
  Report Type: 
  Country: None (occurrence: None)
  Receive Date: 20100124
  Receipt Date: 20091008
  Transmission Date: 20100710
  Serious: No
  Sender: FDA-Public Use
  Company Number: US-ALEXION-A200900713

PATIENT
  Sex: Female

DRUGS (4)
  1. SOLIRIS [Suspect]
     Indication: PAROXYSMAL NOCTURNAL HAEMOGLOBINURIA
     Dosage: 600 MG, QW
     Route: 042
     Dates: start: 20080229, end: 20080321
  2. SOLIRIS [Suspect]
     Dosage: 900 MG, Q2W
     Route: 042
     Dates: start: 20080328, end: 20090924
  3. SOLIRIS [Suspect]
     Dosage: 900 MG, Q 12 DAYS
     Route: 042
     Dates: start: 20091006
  4. HOMEOPATIC PREPARATION [Suspect]
     Indication: BLOOD IRON INCREASED
     Dosage: UNK
     Dates: start: 20090906

REACTIONS (7)
  - ADVERSE DRUG REACTION [None]
  - CHROMATURIA [None]
  - FATIGUE [None]
  - HAEMOGLOBINURIA [None]
  - HAEMOLYSIS [None]
  - HEADACHE [None]
  - MALAISE [None]
